FAERS Safety Report 5624579-7 (Version None)
Quarter: 2008Q1

REPORT INFORMATION
  Report Type: 
  Country: None (occurrence: None)
  Receive Date: 20080213
  Receipt Date: 20080130
  Transmission Date: 20080703
  Serious: Yes (Hospitalization)
  Sender: FDA-Public Use
  Company Number: US-ELI_LILLY_AND_COMPANY-US200801006910

PATIENT
  Sex: Female

DRUGS (6)
  1. FORTEO [Suspect]
     Dosage: UNK, UNK
     Dates: start: 20050101
  2. FORTEO [Suspect]
     Dates: end: 20070301
  3. CALCIUM GLUCONATE [Concomitant]
  4. MAGNESIUM [Concomitant]
  5. ERGOCALCIFEROL [Concomitant]
  6. PNEUMOCOCCAL VACCINE [Concomitant]

REACTIONS (8)
  - BLOOD PRESSURE ABNORMAL [None]
  - BONE DENSITY DECREASED [None]
  - BONE PAIN [None]
  - BRONCHITIS [None]
  - DRUG INEFFECTIVE [None]
  - MUSCULOSKELETAL PAIN [None]
  - PAIN IN EXTREMITY [None]
  - PNEUMONIA [None]
